FAERS Safety Report 9207859 (Version 3)
Quarter: 2013Q2

REPORT INFORMATION
  Report Type: Spontaneous
  Country: FR (occurrence: FR)
  Receive Date: 20130403
  Receipt Date: 20130417
  Transmission Date: 20140414
  Serious: Yes (Hospitalization)
  Sender: FDA-Public Use
  Company Number: FR-GLAXOSMITHKLINE-B0878288A

PATIENT
  Age: 76 Year
  Sex: Female

DRUGS (8)
  1. HYCAMTIN [Suspect]
     Indication: UTERINE CANCER
     Route: 042
     Dates: end: 201209
  2. CISPLATIN [Suspect]
     Indication: UTERINE CANCER
     Route: 042
     Dates: end: 201209
  3. LOVENOX [Concomitant]
     Indication: ATRIAL FIBRILLATION
     Dosage: 1.2ML TWICE PER DAY
     Route: 058
     Dates: start: 201210
  4. VERAPAMIL [Concomitant]
     Indication: PRODUCT USED FOR UNKNOWN INDICATION
     Dosage: 240MG PER DAY
     Route: 048
  5. CARDENSIEL [Concomitant]
     Indication: ATRIAL FIBRILLATION
     Dosage: 5MG PER DAY
     Route: 048
     Dates: start: 201210
  6. LASILIX [Concomitant]
     Indication: PRODUCT USED FOR UNKNOWN INDICATION
     Dosage: 20MG PER DAY
     Route: 048
  7. ART [Concomitant]
     Indication: PRODUCT USED FOR UNKNOWN INDICATION
     Dosage: 50MG PER DAY
     Route: 048
  8. MIANSERINE [Concomitant]
     Indication: PRODUCT USED FOR UNKNOWN INDICATION
     Dosage: 1UNIT PER DAY
     Route: 048

REACTIONS (10)
  - Dyspnoea [Recovered/Resolved]
  - Respiratory distress [Recovered/Resolved]
  - Encephalopathy [Recovered/Resolved]
  - Atelectasis [Recovered/Resolved]
  - Atrial fibrillation [Unknown]
  - Disturbance in attention [Recovered/Resolved]
  - Oxygen saturation decreased [Recovered/Resolved]
  - Psychomotor retardation [Recovered/Resolved]
  - Alpha haemolytic streptococcal infection [Unknown]
  - Pyrexia [Recovered/Resolved]
